FAERS Safety Report 10475611 (Version 2)
Quarter: 2014Q3

REPORT INFORMATION
  Report Type: Spontaneous
  Country: FR (occurrence: FR)
  Receive Date: 20140925
  Receipt Date: 20140930
  Transmission Date: 20150326
  Serious: Yes (Hospitalization)
  Sender: FDA-Public Use
  Company Number: FR-ASTRAZENECA-2014SE70437

PATIENT
  Age: 27994 Day
  Sex: Female
  Weight: 55 kg

DRUGS (8)
  1. SOLUPRED [Concomitant]
     Active Substance: PREDNISOLONE
     Dates: start: 20140731
  2. ANAFRANYL [Concomitant]
     Dates: start: 1952
  3. URBANYL [Concomitant]
     Active Substance: CLOBAZAM
     Dosage: 5 MG AT MORNING 10 MG AT NIGHT
     Dates: start: 1982
  4. TEGRETOL [Suspect]
     Active Substance: CARBAMAZEPINE
     Route: 048
     Dates: start: 20140623, end: 20140731
  5. SOLUPRED [Concomitant]
     Active Substance: PREDNISOLONE
  6. CORTANCYL [Suspect]
     Active Substance: PREDNISONE
     Route: 048
     Dates: start: 20140623
  7. INEXIUM [Suspect]
     Active Substance: ESOMEPRAZOLE
     Route: 048
     Dates: start: 20140623
  8. SOLUPRED [Concomitant]
     Active Substance: PREDNISOLONE
     Dates: start: 20140623, end: 20140731

REACTIONS (1)
  - Drug reaction with eosinophilia and systemic symptoms [Recovered/Resolved]

NARRATIVE: CASE EVENT DATE: 20140729
